FAERS Safety Report 7927766-8 (Version None)
Quarter: 2011Q4

REPORT INFORMATION
  Report Type: 
  Country: None (occurrence: None)
  Receive Date: 20111118
  Receipt Date: 20111107
  Transmission Date: 20120403
  Serious: No
  Sender: FDA-Public Use
  Company Number: US-B.I. PHARMACEUTICALS,INC./RIDGEFIELD-2011-BP-18733BP

PATIENT
  Sex: Female

DRUGS (14)
  1. SPIRONOLACTONE [Concomitant]
     Indication: HYPERTENSION
     Dosage: 25 MG
     Route: 048
     Dates: start: 20070101
  2. ISOSORBIDE DINITRATE [Concomitant]
     Indication: PROPHYLAXIS
  3. SIMVASTATIIN [Concomitant]
     Indication: BLOOD CHOLESTEROL INCREASED
     Dosage: 20 MG
     Route: 048
     Dates: start: 20110101
  4. COREG [Concomitant]
     Indication: HEART RATE IRREGULAR
  5. COREG [Concomitant]
     Indication: ATRIAL FIBRILLATION
     Dosage: 12.5 MG
     Route: 048
     Dates: start: 20060101
  6. COREG [Concomitant]
     Indication: HYPERTENSION
  7. LASIX [Concomitant]
     Indication: FLUID RETENTION
  8. SYNTHROID [Concomitant]
     Indication: PROPHYLAXIS
  9. SPIRONOLACTONE [Concomitant]
     Indication: BLOOD POTASSIUM DECREASED
  10. ISOSORBIDE DINITRATE [Concomitant]
     Indication: HYPERTENSION
     Dosage: 60 MG
     Route: 048
     Dates: start: 20060101
  11. PRADAXA [Suspect]
     Indication: ATRIAL FIBRILLATION
     Dosage: 300 MG
     Route: 048
     Dates: start: 20110715
  12. LASIX [Concomitant]
     Indication: HYPERTENSION
     Dosage: 40 MG
     Route: 048
     Dates: start: 20070101
  13. SYNTHROID [Concomitant]
     Indication: HYPOTHYROIDISM
     Dosage: 50 MCG
     Route: 048
     Dates: start: 20060101
  14. ACETAMINOPHEN [Concomitant]
     Indication: RESTLESSNESS
     Route: 048

REACTIONS (4)
  - DYSPEPSIA [None]
  - ENURESIS [None]
  - MUSCULOSKELETAL PAIN [None]
  - ERUCTATION [None]
